FAERS Safety Report 19233738 (Version 1)
Quarter: 2021Q2

REPORT INFORMATION
  Report Type: Spontaneous
  Country: DE (occurrence: DE)
  Receive Date: 20210507
  Receipt Date: 20210507
  Transmission Date: 20210717
  Serious: Yes (Other)
  Sender: FDA-Public Use
  Company Number: DE-JNJFOC-20210503799

PATIENT
  Age: 31 Year
  Sex: Male
  Weight: 73 kg

DRUGS (1)
  1. REGAINE 5% FOAM [Suspect]
     Active Substance: MINOXIDIL
     Indication: ALOPECIA
     Dosage: 1ML/TAG
     Route: 061
     Dates: start: 20200501

REACTIONS (2)
  - Erectile dysfunction [Recovered/Resolved with Sequelae]
  - Loss of libido [Recovered/Resolved with Sequelae]

NARRATIVE: CASE EVENT DATE: 20201107
